FAERS Safety Report 8207780-8 (Version None)
Quarter: 2012Q1

REPORT INFORMATION
  Report Type: 
  Country: None (occurrence: None)
  Receive Date: 20120313
  Receipt Date: 20120313
  Transmission Date: 20120608
  Serious: Yes (Life-Threatening)
  Sender: FDA-Public Use
  Company Number: None

PATIENT
  Age: 52 Year
  Sex: Female
  Weight: 87 kg

DRUGS (1)
  1. SAPHRIS [Suspect]
     Indication: SCHIZOPHRENIA
     Dosage: SAPHRIS 5MG DAILY SL
     Route: 060

REACTIONS (8)
  - ELECTROCARDIOGRAM T WAVE AMPLITUDE DECREASED [None]
  - EMBOLIC STROKE [None]
  - ACUTE MYOCARDIAL INFARCTION [None]
  - HYPERHIDROSIS [None]
  - DYSPNOEA [None]
  - BACK PAIN [None]
  - PAIN IN JAW [None]
  - NAUSEA [None]
